FAERS Safety Report 7217817-0 (Version None)
Quarter: 2011Q1

REPORT INFORMATION
  Report Type: 
  Country: None (occurrence: None)
  Receive Date: 20110110
  Receipt Date: 20050404
  Transmission Date: 20110831
  Serious: Yes (Hospitalization, Other)
  Sender: FDA-Public Use
  Company Number: PHHY2005CA02213

PATIENT
  Sex: Male

DRUGS (7)
  1. SYNTHROID [Concomitant]
     Dosage: 0.075 MG, QD
     Route: 048
  2. SANDOSTATIN LAR [Suspect]
     Indication: CARCINOID TUMOUR
     Dosage: 20 MG, EVERY 4 WEEKS
     Dates: start: 20050413
  3. SANDOSTATIN [Suspect]
     Indication: CARCINOID TUMOUR
     Dosage: UNK
     Route: 058
  4. VITAMIN B-12 [Concomitant]
     Dosage: Q MONTH
     Route: 030
  5. MONOCOR [Concomitant]
     Indication: HYPERTENSION
     Dosage: 10 MG, QD
     Route: 048
  6. LIPITOR [Concomitant]
     Indication: BLOOD CHOLESTEROL
     Dosage: 20 MG Q
     Route: 048
  7. VENTOLIN [Concomitant]
     Dosage: PRN

REACTIONS (3)
  - TOOTH FRACTURE [None]
  - TOOTH EXTRACTION [None]
  - THERAPEUTIC EMBOLISATION [None]
